FAERS Safety Report 9306974 (Version 2)
Quarter: 2013Q4

REPORT INFORMATION
  Report Type: Spontaneous
  Country: US (occurrence: US)
  Receive Date: 20130523
  Receipt Date: 20131112
  Transmission Date: 20140711
  Serious: No
  Sender: FDA-Public Use
  Company Number: US-AMGEN-USASP2013026832

PATIENT
  Sex: 0

DRUGS (1)
  1. ARANESP [Suspect]
     Indication: ANAEMIA

REACTIONS (1)
  - Drug ineffective [Unknown]
